FAERS Safety Report 25057444 (Version 2)
Quarter: 2025Q2

REPORT INFORMATION
  Report Type: Spontaneous
  Country: US (occurrence: US)
  Receive Date: 20250310
  Receipt Date: 20250410
  Transmission Date: 20250717
  Serious: Yes (Other)
  Sender: BRISTOL MYERS SQUIBB
  Company Number: US-BRISTOL-MYERS SQUIBB COMPANY-2025-034826

PATIENT
  Age: 63 Year
  Sex: Female
  Weight: 65.77 kg

DRUGS (1)
  1. REVLIMID [Suspect]
     Active Substance: LENALIDOMIDE
     Indication: Plasma cell myeloma
     Dosage: FREQUENCY: 3 WEEKS ON,1 WEEK OFF; DAILY FOR 21 DAYS THEN 7 DAYS OFF
     Route: 048

REACTIONS (2)
  - Clostridium difficile infection [Unknown]
  - Infection [Unknown]
